FAERS Safety Report 12837205 (Version 1)
Quarter: 2016Q4

REPORT INFORMATION
  Report Type: Spontaneous
  Country: US (occurrence: US)
  Receive Date: 20161008
  Receipt Date: 20161008
  Transmission Date: 20170207
  Serious: Yes (Other)
  Sender: FDA-Public Use
  Company Number: None

PATIENT
  Age: 47 Year
  Sex: Female
  Weight: 88.65 kg

DRUGS (13)
  1. NEXIUM [Concomitant]
     Active Substance: ESOMEPRAZOLE MAGNESIUM
  2. XANAX [Concomitant]
     Active Substance: ALPRAZOLAM
  3. VITAMINS [Concomitant]
     Active Substance: VITAMINS
  4. TRAZODONE [Concomitant]
     Active Substance: TRAZODONE HYDROCHLORIDE
  5. ZOLOFT [Concomitant]
     Active Substance: SERTRALINE HYDROCHLORIDE
  6. PLAQANEL [Concomitant]
  7. LITHIUM. [Concomitant]
     Active Substance: LITHIUM
  8. MULTI VITAMIN [Concomitant]
     Active Substance: VITAMINS
  9. OXYCODONE [Concomitant]
     Active Substance: OXYCODONE
  10. VITAMIN B12 [Concomitant]
     Active Substance: CYANOCOBALAMIN
  11. PRAVASTATIN SODIUM. [Suspect]
     Active Substance: PRAVASTATIN SODIUM
     Indication: BLOOD CHOLESTEROL
     Route: 048
     Dates: start: 20160809, end: 20161007
  12. DOXEPIN [Concomitant]
     Active Substance: DOXEPIN
  13. TYLENOL [Concomitant]
     Active Substance: ACETAMINOPHEN

REACTIONS (7)
  - Headache [None]
  - Hyperacusis [None]
  - Thirst [None]
  - Mood altered [None]
  - Pruritus [None]
  - Insomnia [None]
  - Dyspnoea [None]

NARRATIVE: CASE EVENT DATE: 20160823
